FAERS Safety Report 25515645 (Version 3)
Quarter: 2025Q4

REPORT INFORMATION
  Report Type: Spontaneous
  Country: US (occurrence: US)
  Receive Date: 20250704
  Receipt Date: 20251107
  Transmission Date: 20260118
  Serious: Yes (Hospitalization, Other)
  Sender: SUNOVION
  Company Number: US-SUMITOMO PHARMA SWITZERLAND GMBH-2025SPA008301

PATIENT
  Age: 82 Year
  Sex: Male

DRUGS (1)
  1. GEMTESA [Suspect]
     Active Substance: VIBEGRON
     Indication: Hypertonic bladder
     Dosage: 75 MG, QD
     Route: 048

REACTIONS (15)
  - Joint injury [Unknown]
  - Loss of consciousness [Recovered/Resolved]
  - Fall [Unknown]
  - Craniofacial fracture [Unknown]
  - Dizziness [Unknown]
  - Head injury [Unknown]
  - Arthralgia [Unknown]
  - Somnolence [Unknown]
  - Urinary retention [Unknown]
  - Nasal injury [Unknown]
  - Back injury [Unknown]
  - Pain [Unknown]
  - Back pain [Unknown]
  - Pollakiuria [Unknown]
  - Nocturia [Unknown]

NARRATIVE: CASE EVENT DATE: 20250619
